FAERS Safety Report 8503406-4 (Version None)
Quarter: 2012Q3

REPORT INFORMATION
  Report Type: 
  Country: None (occurrence: None)
  Receive Date: 20120702
  Receipt Date: 20120618
  Transmission Date: 20120928
  Serious: Yes (Other)
  Sender: FDA-Public Use
  Company Number: 2012P1042884

PATIENT
  Age: 22 Year
  Sex: Male

DRUGS (1)
  1. ISOTRETINOIN [Suspect]
     Indication: ACNE CYSTIC
     Dosage: 0.3 MG/KG;PO
     Route: 048

REACTIONS (4)
  - CORNEAL DISORDER [None]
  - CHEILITIS [None]
  - MYOPIA [None]
  - CONDITION AGGRAVATED [None]
